FAERS Safety Report 25116498 (Version 3)
Quarter: 2025Q3

REPORT INFORMATION
  Report Type: Spontaneous
  Country: CA (occurrence: CA)
  Receive Date: 20250325
  Receipt Date: 20250704
  Transmission Date: 20251020
  Serious: Yes (Other)
  Sender: INTERCEPT PHARMACEUTICALS
  Company Number: CA-ADVANZ PHARMA-202304002949

PATIENT
  Age: 51 Year
  Sex: Female

DRUGS (8)
  1. OCALIVA [Suspect]
     Active Substance: OBETICHOLIC ACID
     Indication: Primary biliary cholangitis
     Route: 048
     Dates: start: 20221117
  2. URSODIOL [Concomitant]
     Active Substance: URSODIOL
     Indication: Primary biliary cholangitis
  3. NEXIUM [Concomitant]
     Active Substance: ESOMEPRAZOLE MAGNESIUM
     Indication: Abdominal discomfort
  4. BEZAFIBRATE [Concomitant]
     Active Substance: BEZAFIBRATE
  5. BEZAFIBRATE [Concomitant]
     Active Substance: BEZAFIBRATE
  6. BEZAFIBRATE [Concomitant]
     Active Substance: BEZAFIBRATE
  7. NEXIUM [Concomitant]
     Active Substance: ESOMEPRAZOLE MAGNESIUM
     Indication: Abdominal discomfort
  8. NEXIUM [Concomitant]
     Active Substance: ESOMEPRAZOLE MAGNESIUM

REACTIONS (13)
  - Spinal cord disorder [Unknown]
  - Spinal pain [Unknown]
  - Central nervous system lesion [Unknown]
  - Abdominal mass [Unknown]
  - Inflammation [Unknown]
  - Haemoglobin decreased [Unknown]
  - Blood iron decreased [Recovering/Resolving]
  - Nausea [Recovering/Resolving]
  - Alanine aminotransferase abnormal [Unknown]
  - Aspartate aminotransferase abnormal [Unknown]
  - Blood alkaline phosphatase abnormal [Unknown]
  - Fatigue [Recovering/Resolving]
  - Abdominal pain upper [Not Recovered/Not Resolved]

NARRATIVE: CASE EVENT DATE: 20230513
